FAERS Safety Report 10210764 (Version 2)
Quarter: 2014Q2

REPORT INFORMATION
  Report Type: Not Available
  Country: None (occurrence: US)
  Receive Date: 20140602
  Receipt Date: 20140602
  Transmission Date: 20141212
  Serious: Yes (Hospitalization)
  Sender: FDA-Public Use
  Company Number: US-ONYX-2014-0640

PATIENT
  Age: 58 Year
  Sex: Male
  Weight: 116.68 kg

DRUGS (7)
  1. KYPROLIS [Suspect]
     Indication: PLASMA CELL MYELOMA
     Route: 042
     Dates: start: 20130226
  2. KYPROLIS [Suspect]
     Route: 042
     Dates: start: 20130226
  3. POMALYST [Concomitant]
     Indication: PRODUCT USED FOR UNKNOWN INDICATION
     Dates: start: 20131201
  4. MORPHINE [Concomitant]
     Indication: PAIN
  5. MORPHINE [Concomitant]
     Indication: NEUROPATHY PERIPHERAL
  6. COMPAZINE [Concomitant]
     Indication: NAUSEA
  7. ASPIRIN [Concomitant]
     Indication: PRODUCT USED FOR UNKNOWN INDICATION

REACTIONS (4)
  - Respiratory failure [Recovered/Resolved]
  - Pneumonia [Recovered/Resolved]
  - Bronchitis [Recovered/Resolved]
  - Chills [Not Recovered/Not Resolved]
